FAERS Safety Report 15964001 (Version 1)
Quarter: 2019Q1

REPORT INFORMATION
  Report Type: Spontaneous
  Country: US (occurrence: US)
  Receive Date: 20190214
  Receipt Date: 20190214
  Transmission Date: 20190417
  Serious: No
  Sender: FDA-Public Use
  Company Number: PHEH2019US006032

PATIENT
  Sex: Female

DRUGS (14)
  1. IBRANCE [Suspect]
     Active Substance: PALBOCICLIB
     Indication: BREAST CANCER STAGE IV
     Dosage: 100 MG, QMO (28 DAYS)
     Route: 065
  2. LETROZOLE. [Suspect]
     Active Substance: LETROZOLE
     Indication: METASTASES TO LUNG
  3. IBRANCE [Suspect]
     Active Substance: PALBOCICLIB
     Indication: METASTASES TO BONE
  4. ACETAMINOPHEN. [Concomitant]
     Active Substance: ACETAMINOPHEN
     Indication: PAIN
     Dosage: UNK UNK, BID (NORCO 5 MG-325 MG ORAL TABLET) 1 TAB BY M UTH Q6 AS NEEDED AS NEEDED FOR PAIN)
     Route: 048
  5. CEPHALEXIN. [Concomitant]
     Active Substance: CEPHALEXIN
     Indication: PRODUCT USED FOR UNKNOWN INDICATION
     Dosage: 500 MG, ()CEPHATEXLN (CEPHALEXIN 500 MG ORAL CAPSULE) 1CAP500 MG BY MOUTH QB
     Route: 048
  6. SENNA [Concomitant]
     Active Substance: SENNA LEAF\SENNOSIDES\SENNOSIDES A AND B
     Indication: CONSTIPATION
     Dosage: 30 MG, QD (2 TAB 30 MG BY MOUTH DALLY)
     Route: 048
  7. LETROZOLE. [Suspect]
     Active Substance: LETROZOLE
     Indication: BREAST CANCER STAGE IV
     Dosage: 2.5 MG, QD
     Route: 048
  8. LETROZOLE. [Suspect]
     Active Substance: LETROZOLE
     Indication: METASTASES TO BONE
  9. IBUPROFEN. [Concomitant]
     Active Substance: IBUPROFEN
     Indication: PAIN
     Dosage: UNK
     Route: 065
  10. IBRANCE [Suspect]
     Active Substance: PALBOCICLIB
     Indication: METASTASES TO LUNG
  11. LORATADINE. [Concomitant]
     Active Substance: LORATADINE
     Indication: PRODUCT USED FOR UNKNOWN INDICATION
     Dosage: UNK
     Route: 065
  12. SENNA [Concomitant]
     Active Substance: SENNA LEAF\SENNOSIDES\SENNOSIDES A AND B
     Dosage: 8.6 MG, BID (1 TAB 8.6 MG BY MOUTH BID AS NEEDED AS EEDED)
     Route: 048
  13. COLACE [Concomitant]
     Active Substance: DOCUSATE SODIUM
     Indication: PRODUCT USED FOR UNKNOWN INDICATION
     Dosage: 100 MG, BID (CAP 100 MG BY MOUTH BID)
     Route: 048
  14. CALCIUM [Concomitant]
     Active Substance: CALCIUM
     Indication: PRODUCT USED FOR UNKNOWN INDICATION
     Dosage: 1 DF, BID ((1 TAB BY MOUTH BLD))
     Route: 048

REACTIONS (7)
  - Blood albumin decreased [Unknown]
  - White blood cell count decreased [Unknown]
  - Mean cell volume abnormal [Unknown]
  - Movement disorder [Unknown]
  - Palpitations [Unknown]
  - Musculoskeletal chest pain [Unknown]
  - Neutrophil count decreased [Unknown]
